FAERS Safety Report 16258093 (Version 1)
Quarter: 2019Q2

REPORT INFORMATION
  Report Type: Report from Study
  Country: US (occurrence: US)
  Receive Date: 20190430
  Receipt Date: 20190430
  Transmission Date: 20190711
  Serious: Yes (Hospitalization, Other)
  Sender: FDA-Public Use
  Company Number: US-PFIZER INC-2017154684

PATIENT
  Age: 58 Year
  Sex: Female
  Weight: 67.59 kg

DRUGS (11)
  1. MAITAKE GOLD 1200 [Concomitant]
     Dosage: 20 GTT, 2X/DAY
     Route: 048
     Dates: start: 20160323
  2. IBRANCE [Suspect]
     Active Substance: PALBOCICLIB
     Indication: BREAST CANCER
     Dosage: 75 MG, CYCLIC [ONCE DAILY BY MOUTH FOR 3 WEEKS AND THEN 1 WEEK OFF]
     Route: 048
     Dates: start: 20160323
  3. IBRANCE [Suspect]
     Active Substance: PALBOCICLIB
     Dosage: 75 MG, DAILY
     Route: 048
     Dates: start: 20170525, end: 20170608
  4. LETROZOLE. [Concomitant]
     Active Substance: LETROZOLE
     Indication: METASTASES TO BONE
     Dosage: UNK
     Dates: start: 201704
  5. TURMERIC [Concomitant]
     Active Substance: HERBALS\TURMERIC
     Dosage: UNK
     Dates: start: 2017
  6. LETROZOLE. [Concomitant]
     Active Substance: LETROZOLE
     Indication: BREAST CANCER
     Dosage: 2.5 MG, 1X/DAY
     Route: 048
     Dates: start: 201603
  7. IBRANCE [Suspect]
     Active Substance: PALBOCICLIB
     Dosage: 75 MG, CYCLIC (ONCE DAILY REST 7 DAYS)
     Dates: start: 201704
  8. MAITAKE GOLD 1200 [Concomitant]
     Dosage: UNK
     Dates: start: 201703
  9. TURMERIC [Concomitant]
     Active Substance: HERBALS\TURMERIC
     Dosage: 2000 MG, DAILY [4 TABLETS DAILY]
     Route: 048
     Dates: start: 201603
  10. IBRANCE [Suspect]
     Active Substance: PALBOCICLIB
     Dosage: 75 MG, DAILY
     Route: 048
     Dates: start: 20170323, end: 20170412
  11. IBRANCE [Suspect]
     Active Substance: PALBOCICLIB
     Dosage: 75 MG, DAILY
     Route: 048
     Dates: start: 20170719

REACTIONS (10)
  - Stomatitis [Unknown]
  - Fatigue [Recovered/Resolved]
  - Vertigo [Recovered/Resolved]
  - White blood cell count decreased [Not Recovered/Not Resolved]
  - Kidney infection [Recovered/Resolved]
  - Dyspnoea [Not Recovered/Not Resolved]
  - Haemoglobin decreased [Not Recovered/Not Resolved]
  - Weight increased [Recovered/Resolved]
  - Renal function test abnormal [Recovered/Resolved]
  - Red blood cell count decreased [Not Recovered/Not Resolved]

NARRATIVE: CASE EVENT DATE: 2016
